FAERS Safety Report 18986237 (Version 1)
Quarter: 2021Q1

REPORT INFORMATION
  Report Type: Report from Study
  Country: ES (occurrence: ES)
  Receive Date: 20210309
  Receipt Date: 20210309
  Transmission Date: 20210420
  Serious: Yes (Other)
  Sender: FDA-Public Use
  Company Number: ES-CELGENEUS-ESP-20210301167

PATIENT

DRUGS (7)
  1. OXALIPLATIN. [Concomitant]
     Active Substance: OXALIPLATIN
     Indication: PANCREATIC CARCINOMA METASTATIC
     Route: 041
  2. ABRAXANE [Suspect]
     Active Substance: PACLITAXEL
     Dosage: DOSE REDUCED
     Route: 041
  3. GEMCITABINE. [Concomitant]
     Active Substance: GEMCITABINE
     Indication: PANCREATIC CARCINOMA METASTATIC
     Route: 041
  4. LEUCOVORIN. [Concomitant]
     Active Substance: LEUCOVORIN
     Indication: PANCREATIC CARCINOMA METASTATIC
     Route: 041
  5. ABRAXANE [Suspect]
     Active Substance: PACLITAXEL
     Indication: PANCREATIC CARCINOMA METASTATIC
     Route: 041
  6. 5? FU [Concomitant]
     Indication: PANCREATIC CARCINOMA METASTATIC
     Dosage: DAY 29
     Route: 041
  7. LEUCOVORIN. [Concomitant]
     Active Substance: LEUCOVORIN
     Route: 041

REACTIONS (1)
  - Neurotoxicity [Unknown]
